FAERS Safety Report 7925381 (Version 4)
Quarter: 2013Q2

REPORT INFORMATION
  Report Type: Spontaneous
  Country: US (occurrence: US)
  Receive Date: 20110502
  Receipt Date: 20130617
  Transmission Date: 20140414
  Serious: No
  Sender: FDA-Public Use
  Company Number: US-ASTRAZENECA-2010SE22825

PATIENT
  Age: 49 Year
  Sex: Female

DRUGS (1)
  1. NEXIUM [Suspect]
     Route: 048

REACTIONS (8)
  - Weight decreased [Unknown]
  - Aphagia [Unknown]
  - Dyspepsia [Unknown]
  - Crohn^s disease [Unknown]
  - Abdominal discomfort [Unknown]
  - Nausea [Unknown]
  - Malaise [Unknown]
  - Drug dose omission [Unknown]
